FAERS Safety Report 7986032-5 (Version None)
Quarter: 2011Q4

REPORT INFORMATION
  Report Type: 
  Country: None (occurrence: None)
  Receive Date: 20111216
  Receipt Date: 20110105
  Transmission Date: 20120403
  Serious: No
  Sender: FDA-Public Use
  Company Number: US-BRISTOL-MYERS SQUIBB COMPANY-15471261

PATIENT
  Age: 16 Year
  Sex: Female

DRUGS (4)
  1. AMOXICILLIN [Suspect]
     Indication: EAR INFECTION
  2. VYVANSE [Concomitant]
     Indication: ATTENTION DEFICIT/HYPERACTIVITY DISORDER
  3. ABILIFY [Suspect]
     Dosage: PATIENT WAS ON ABILIFY FOR A COUPLE OF YEARS.INTERRUPTED AND THEN RESTARTED
     Route: 048
  4. CYMBALTA [Concomitant]

REACTIONS (7)
  - MUSCULOSKELETAL STIFFNESS [None]
  - EAR INFECTION [None]
  - BONE PAIN [None]
  - OROPHARYNGEAL SPASM [None]
  - DYSKINESIA [None]
  - INSOMNIA [None]
  - PAIN [None]
